FAERS Safety Report 25613159 (Version 1)
Quarter: 2025Q3

REPORT INFORMATION
  Report Type: Report from Study
  Country: BR (occurrence: BR)
  Receive Date: 20250728
  Receipt Date: 20250728
  Transmission Date: 20251021
  Serious: Yes (Other)
  Sender: MYLAN
  Company Number: BR-MYLANLABS-2025M1062478

PATIENT
  Sex: Female
  Weight: 63 kg

DRUGS (16)
  1. XALATAN [Suspect]
     Active Substance: LATANOPROST
     Indication: Glaucoma
  2. XALATAN [Suspect]
     Active Substance: LATANOPROST
     Route: 065
  3. XALATAN [Suspect]
     Active Substance: LATANOPROST
     Route: 065
  4. XALATAN [Suspect]
     Active Substance: LATANOPROST
  5. LATANOPROST\TIMOLOL MALEATE [Suspect]
     Active Substance: LATANOPROST\TIMOLOL MALEATE
     Indication: Glaucoma
     Dosage: 1 GTT DROPS, AM (1 DROP INTO EACH EYE IN THE MORNING)
     Dates: start: 2005
  6. LATANOPROST\TIMOLOL MALEATE [Suspect]
     Active Substance: LATANOPROST\TIMOLOL MALEATE
     Dosage: 1 GTT DROPS, AM (1 DROP INTO EACH EYE IN THE MORNING)
     Dates: start: 2005
  7. LATANOPROST\TIMOLOL MALEATE [Suspect]
     Active Substance: LATANOPROST\TIMOLOL MALEATE
     Dosage: 1 GTT DROPS, AM (1 DROP INTO EACH EYE IN THE MORNING)
     Route: 047
     Dates: start: 2005
  8. LATANOPROST\TIMOLOL MALEATE [Suspect]
     Active Substance: LATANOPROST\TIMOLOL MALEATE
     Dosage: 1 GTT DROPS, AM (1 DROP INTO EACH EYE IN THE MORNING)
     Route: 047
     Dates: start: 2005
  9. LATANOPROST\TIMOLOL MALEATE [Suspect]
     Active Substance: LATANOPROST\TIMOLOL MALEATE
     Dosage: 1 GTT DROPS, AM (1 DROP INTO EACH EYE IN THE MORNING)
  10. LATANOPROST\TIMOLOL MALEATE [Suspect]
     Active Substance: LATANOPROST\TIMOLOL MALEATE
     Dosage: 1 GTT DROPS, AM (1 DROP INTO EACH EYE IN THE MORNING)
  11. LATANOPROST\TIMOLOL MALEATE [Suspect]
     Active Substance: LATANOPROST\TIMOLOL MALEATE
     Dosage: 1 GTT DROPS, AM (1 DROP INTO EACH EYE IN THE MORNING)
     Route: 047
  12. LATANOPROST\TIMOLOL MALEATE [Suspect]
     Active Substance: LATANOPROST\TIMOLOL MALEATE
     Dosage: 1 GTT DROPS, AM (1 DROP INTO EACH EYE IN THE MORNING)
     Route: 047
  13. TIMOLOL [Suspect]
     Active Substance: TIMOLOL
     Indication: Glaucoma
  14. TIMOLOL [Suspect]
     Active Substance: TIMOLOL
     Route: 065
  15. TIMOLOL [Suspect]
     Active Substance: TIMOLOL
     Route: 065
  16. TIMOLOL [Suspect]
     Active Substance: TIMOLOL

REACTIONS (3)
  - Cataract [Unknown]
  - Blindness [Not Recovered/Not Resolved]
  - Drug ineffective [Recovered/Resolved]
